FAERS Safety Report 7026789-3 (Version None)
Quarter: 2010Q3

REPORT INFORMATION
  Report Type: 
  Country: None (occurrence: None)
  Receive Date: 20100929
  Receipt Date: 20100923
  Transmission Date: 20110219
  Serious: Yes (Death)
  Sender: FDA-Public Use
  Company Number: 2010US003920

PATIENT
  Sex: Female

DRUGS (1)
  1. AMBISOME [Suspect]
     Indication: ABDOMINAL INFECTION
     Dates: start: 20100917

REACTIONS (4)
  - CARDIAC ARREST [None]
  - HYPERKALAEMIA [None]
  - MULTI-ORGAN FAILURE [None]
  - PULMONARY EMBOLISM [None]
